FAERS Safety Report 18905357 (Version 4)
Quarter: 2022Q1

REPORT INFORMATION
  Report Type: Report from Study
  Country: CA (occurrence: CA)
  Receive Date: 20210217
  Receipt Date: 20220314
  Transmission Date: 20220423
  Serious: Yes (Other)
  Sender: FDA-Public Use
  Company Number: CA-TAKEDA-CA201927487

PATIENT
  Age: 30 Year
  Sex: Female
  Weight: 60 kg

DRUGS (29)
  1. TEDUGLUTIDE [Suspect]
     Active Substance: TEDUGLUTIDE
     Indication: Short-bowel syndrome
     Dosage: 2.90 MILLIGRAM, 1X/DAY:QD
     Route: 050
     Dates: start: 20160930
  2. TEDUGLUTIDE [Suspect]
     Active Substance: TEDUGLUTIDE
     Indication: Short-bowel syndrome
     Dosage: 2.90 MILLIGRAM, 1X/DAY:QD
     Route: 050
     Dates: start: 20160930
  3. TEDUGLUTIDE [Suspect]
     Active Substance: TEDUGLUTIDE
     Indication: Short-bowel syndrome
     Dosage: 2.90 MILLIGRAM, 1X/DAY:QD
     Route: 050
     Dates: start: 20160930
  4. TEDUGLUTIDE [Suspect]
     Active Substance: TEDUGLUTIDE
     Indication: Short-bowel syndrome
     Dosage: 2.90 MILLIGRAM, 1X/DAY:QD
     Route: 050
     Dates: start: 20160930
  5. TEDUGLUTIDE [Suspect]
     Active Substance: TEDUGLUTIDE
     Dosage: 2.85 MILLIGRAM, QD
     Route: 065
     Dates: start: 20160930
  6. TEDUGLUTIDE [Suspect]
     Active Substance: TEDUGLUTIDE
     Dosage: 2.85 MILLIGRAM, QD
     Route: 065
     Dates: start: 20160930
  7. TEDUGLUTIDE [Suspect]
     Active Substance: TEDUGLUTIDE
     Dosage: 2.85 MILLIGRAM, QD
     Route: 065
     Dates: start: 20160930
  8. TEDUGLUTIDE [Suspect]
     Active Substance: TEDUGLUTIDE
     Dosage: 2.85 MILLIGRAM, QD
     Route: 065
     Dates: start: 20160930
  9. TEDUGLUTIDE [Suspect]
     Active Substance: TEDUGLUTIDE
     Dosage: 3 MILLIGRAM, QD
     Route: 050
     Dates: start: 20160930
  10. TEDUGLUTIDE [Suspect]
     Active Substance: TEDUGLUTIDE
     Dosage: 3 MILLIGRAM, QD
     Route: 050
     Dates: start: 20160930
  11. TEDUGLUTIDE [Suspect]
     Active Substance: TEDUGLUTIDE
     Dosage: 3 MILLIGRAM, QD
     Route: 050
     Dates: start: 20160930
  12. TEDUGLUTIDE [Suspect]
     Active Substance: TEDUGLUTIDE
     Dosage: 3 MILLIGRAM, QD
     Route: 050
     Dates: start: 20160930
  13. ASPIRIN [Concomitant]
     Active Substance: ASPIRIN
     Dosage: 81 MILLIGRAM, BID
     Route: 048
  14. FRAGMIN [Concomitant]
     Active Substance: DALTEPARIN SODIUM
     Dosage: 18000 INTERNATIONAL UNIT
     Route: 058
     Dates: start: 20180611
  15. FRAGMIN [Concomitant]
     Active Substance: DALTEPARIN SODIUM
     Dosage: 15000 INTERNATIONAL UNIT
     Route: 058
  16. VITAMIN D NOS [Concomitant]
     Active Substance: VITAMIN D NOS
     Dosage: 2000 INTERNATIONAL UNIT, QD
     Route: 065
  17. IMODIUM [Concomitant]
     Active Substance: LOPERAMIDE HYDROCHLORIDE
     Dosage: 2 MILLIGRAM 3 TO 5 TIMES DAILY
     Route: 065
  18. SODIUM BICARBONATE [Concomitant]
     Active Substance: SODIUM BICARBONATE
     Dosage: 1000 MILLIGRAM, QID
     Route: 065
  19. SODIUM BICARBONATE [Concomitant]
     Active Substance: SODIUM BICARBONATE
     Dosage: 500 MILLIGRAM
     Route: 065
  20. SODIUM BICARBONATE [Concomitant]
     Active Substance: SODIUM BICARBONATE
     Dosage: 500 MILLIGRAM, QD
     Route: 065
  21. BENEFIBER [Concomitant]
     Active Substance: STARCH, WHEAT
     Dosage: UNK UNK, QD
     Route: 065
  22. LANSOPRAZOLE [Concomitant]
     Active Substance: LANSOPRAZOLE
     Dosage: 30 MILLIGRAM, QD
     Route: 065
  23. CREON [Concomitant]
     Active Substance: PANCRELIPASE AMYLASE\PANCRELIPASE LIPASE\PANCRELIPASE PROTEASE
     Dosage: 10249 MILLIGRAM
     Route: 065
  24. RETINOL [Concomitant]
     Active Substance: RETINOL
     Dosage: 10000 INTERNATIONAL UNIT, QD
     Route: 065
  25. ZINC [Concomitant]
     Active Substance: ZINC
     Dosage: 25 MILLIGRAM, QD
     Route: 065
  26. AMINO ACIDS\CARBOHYDRATES\MINERALS\VITAMINS [Concomitant]
     Active Substance: AMINO ACIDS\CARBOHYDRATES\MINERALS\VITAMINS
     Dosage: UNK
     Route: 065
  27. SULFATRIM [Concomitant]
     Active Substance: SULFAMETHOXAZOLE\TRIMETHOPRIM
     Indication: Abdominal pain
     Dosage: UNK
     Route: 065
  28. VITAMINS [Concomitant]
     Active Substance: VITAMINS
     Dosage: 1 DOSAGE FORM, QD
     Route: 065
  29. PEGYLATED INTERFERON ALPHA NOS [Concomitant]
     Active Substance: PEGINTERFERON ALFA-2A OR PEGINTERFERON ALFA-2B
     Dosage: 135 MICROGRAM PER MILLIGRAM, 1/WEEK
     Route: 065

REACTIONS (4)
  - Haematochezia [Unknown]
  - Weight fluctuation [Unknown]
  - Abdominal pain [Recovering/Resolving]
  - Product dose omission issue [Unknown]

NARRATIVE: CASE EVENT DATE: 20191021
